FAERS Safety Report 6654105-5 (Version None)
Quarter: 2010Q1

REPORT INFORMATION
  Report Type: 
  Country: None (occurrence: None)
  Receive Date: 20100326
  Receipt Date: 20100322
  Transmission Date: 20100710
  Serious: Yes (Death, Hospitalization, Other)
  Sender: FDA-Public Use
  Company Number: PHEH2010US02655

PATIENT
  Sex: Male

DRUGS (9)
  1. EXJADE [Suspect]
     Indication: IRON OVERLOAD
     Dosage: 500 MG DAILY
     Route: 048
     Dates: start: 20071123, end: 20100203
  2. ANTIARRHYTHMICS, CLASS I AND III [Concomitant]
     Dosage: UNK
  3. HYDROCORTISONE [Concomitant]
     Indication: BLOOD PRODUCT TRANSFUSION
     Dosage: 100 MG, UNK
     Route: 042
  4. ATARAX                             /00058403/ [Concomitant]
     Indication: BLOOD PRODUCT TRANSFUSION
     Dosage: 25 MG, UNK
     Route: 048
  5. ANTIHYPERTENSIVES [Concomitant]
  6. BUPIVACAINE HCL [Concomitant]
     Dosage: 10 MG/ML, UNK
  7. CLONIDINE [Concomitant]
     Dosage: 0.5 MG/ML, UNK
  8. HYDROMORPHONE HCL [Concomitant]
     Dosage: 12 MG, UNK
  9. PROTONIX [Concomitant]

REACTIONS (35)
  - ATRIAL FIBRILLATION [None]
  - BIOPSY BONE MARROW ABNORMAL [None]
  - BRADYCARDIA [None]
  - BRAIN NATRIURETIC PEPTIDE INCREASED [None]
  - CARDIAC FAILURE CONGESTIVE [None]
  - CELLULITIS [None]
  - CIRCUMCISION [None]
  - COUGH [None]
  - EJECTION FRACTION DECREASED [None]
  - ERYTHEMA [None]
  - FEBRILE NEUTROPENIA [None]
  - FUNGAL INFECTION [None]
  - GASTRIC VARICES [None]
  - GASTROINTESTINAL HAEMORRHAGE [None]
  - HAEMOGLOBIN DECREASED [None]
  - HAEMORRHAGIC DIATHESIS [None]
  - HYPERBILIRUBINAEMIA [None]
  - HYPOTENSION [None]
  - INTERVERTEBRAL DISCITIS [None]
  - LEUKAEMIA RECURRENT [None]
  - LIVER FUNCTION TEST ABNORMAL [None]
  - LUNG DISORDER [None]
  - LUNG INFILTRATION [None]
  - MALIGNANT NEOPLASM PROGRESSION [None]
  - MENTAL STATUS CHANGES [None]
  - NEUTROPHIL COUNT DECREASED [None]
  - OCCULT BLOOD POSITIVE [None]
  - RENAL FAILURE ACUTE [None]
  - RENAL TUBULAR NECROSIS [None]
  - SEPSIS [None]
  - SKIN NECROSIS [None]
  - THROMBOCYTOPENIA [None]
  - TRANSAMINASES INCREASED [None]
  - VENA CAVA THROMBOSIS [None]
  - WHITE BLOOD CELL COUNT DECREASED [None]
